FAERS Safety Report 4346997-X (Version None)
Quarter: 2004Q1

REPORT INFORMATION
  Report Type: 
  Country: None (occurrence: None)
  Receive Date: 20040325
  Receipt Date: 20040130
  Transmission Date: 20041129
  Serious: No
  Sender: FDA-Public Use
  Company Number: USA040258104

PATIENT
  Age: 56 Year
  Sex: Female
  Weight: 56 kg

DRUGS (3)
  1. FORTEO [Suspect]
     Indication: OSTEOPOROSIS
     Dosage: 20 UG/DAY
     Dates: start: 20030901, end: 20031219
  2. FOSAMAX [Concomitant]
  3. MIRAPEX (MIRAPEX) [Concomitant]

REACTIONS (4)
  - JOINT SWELLING [None]
  - NIGHT CRAMPS [None]
  - ONYCHOMYCOSIS [None]
  - PARAESTHESIA [None]
